FAERS Safety Report 5721309-5 (Version None)
Quarter: 2008Q2

REPORT INFORMATION
  Report Type: 
  Country: None (occurrence: None)
  Receive Date: 20080429
  Receipt Date: 20080421
  Transmission Date: 20081010
  Serious: Yes (Hospitalization)
  Sender: FDA-Public Use
  Company Number: FR-TYCO HEALTHCARE/MALLINCKRODT-T200800710

PATIENT

DRUGS (1)
  1. OPTIJECT 350 [Suspect]
     Indication: COMPUTERISED TOMOGRAM
     Dosage: NONE ADMINISTERED
     Route: 042
     Dates: start: 20080327, end: 20080327

REACTIONS (2)
  - AIR EMBOLISM [None]
  - DRUG ADMINISTRATION ERROR [None]
